FAERS Safety Report 4286723-6 (Version None)
Quarter: 2004Q1

REPORT INFORMATION
  Report Type: 
  Country: None (occurrence: None)
  Receive Date: 20040204
  Receipt Date: 20040123
  Transmission Date: 20041129
  Serious: Yes (Other)
  Sender: FDA-Public Use
  Company Number: ZONI001307

PATIENT
  Age: 31 Year
  Sex: Female

DRUGS (3)
  1. ZONEGRAN [Suspect]
     Indication: MIGRAINE
     Dosage: ORAL
     Route: 048
     Dates: start: 20040119
  2. IMITREX [Concomitant]
  3. FLEXERIL [Concomitant]

REACTIONS (2)
  - DRUG TOXICITY [None]
  - VISUAL DISTURBANCE [None]
